FAERS Safety Report 9964420 (Version 1)
Quarter: 2014Q1

REPORT INFORMATION
  Report Type: Spontaneous
  Country: US (occurrence: US)
  Receive Date: 20140305
  Receipt Date: 20140305
  Transmission Date: 20141002
  Serious: Yes (Other)
  Sender: FDA-Public Use
  Company Number: US-PFIZER INC-2014050712

PATIENT
  Age: 75 Year
  Sex: Female
  Weight: 88.44 kg

DRUGS (4)
  1. ROBITUSSIN PEAK COLD MAXIMUM STRENGTH MULTI-SYMPTOM COLD [Suspect]
     Indication: BRONCHITIS
     Dosage: 10 ML, THREE TIMES A DAY
     Dates: start: 20140204, end: 201402
  2. CLARINEX [Concomitant]
     Indication: HYPERSENSITIVITY
     Dosage: 5 MG, DAILY
  3. CLARINEX [Concomitant]
     Indication: SINUSITIS
  4. PLAQUENIL [Concomitant]
     Indication: ARTHRITIS
     Dosage: 100 MG, DAILY

REACTIONS (1)
  - Hypertension [Unknown]
